FAERS Safety Report 7042505-3 (Version None)
Quarter: 2010Q4

REPORT INFORMATION
  Report Type: 
  Country: None (occurrence: None)
  Receive Date: 20101013
  Receipt Date: 20100114
  Transmission Date: 20110411
  Serious: No
  Sender: FDA-Public Use
  Company Number: US-ASTRAZENECA-2010SE01784

PATIENT
  Age: 24350 Day
  Sex: Female
  Weight: 71.2 kg

DRUGS (1)
  1. SYMBICORT [Suspect]
     Dosage: 640 MCG
     Route: 055
     Dates: start: 20090701

REACTIONS (2)
  - DRUG DOSE OMISSION [None]
  - DYSPNOEA [None]
